FAERS Safety Report 14451902 (Version 2)
Quarter: 2019Q1

REPORT INFORMATION
  Report Type: Spontaneous
  Country: US (occurrence: US)
  Receive Date: 20180129
  Receipt Date: 20190204
  Transmission Date: 20190417
  Serious: Yes (Hospitalization)
  Sender: FDA-Public Use
  Company Number: US-ABBVIE-17K-163-2205448-00

PATIENT
  Sex: Male

DRUGS (6)
  1. RITUXAN [Suspect]
     Active Substance: RITUXIMAB
     Indication: RHEUMATIC DISORDER
     Route: 065
  2. ARAVA [Suspect]
     Active Substance: LEFLUNOMIDE
     Indication: RHEUMATIC DISORDER
     Route: 065
  3. HUMIRA [Suspect]
     Active Substance: ADALIMUMAB
     Indication: RHEUMATIC DISORDER
     Route: 058
  4. SULFAMETHAZINE [Suspect]
     Active Substance: SULFAMETHAZINE
     Indication: RHEUMATIC DISORDER
     Route: 065
  5. METHOTREXATE. [Suspect]
     Active Substance: METHOTREXATE
     Indication: RHEUMATIC DISORDER
     Route: 065
  6. ORENCIA [Suspect]
     Active Substance: ABATACEPT
     Indication: RHEUMATIC DISORDER
     Route: 065

REACTIONS (9)
  - Drug eruption [Unknown]
  - Pleural effusion [Unknown]
  - Bone pain [Unknown]
  - Rash vesicular [Unknown]
  - Colitis [Unknown]
  - Diarrhoea [Unknown]
  - Hospitalisation [Unknown]
  - Drug ineffective [Unknown]
  - Adverse drug reaction [Unknown]
